FAERS Safety Report 12892480 (Version 4)
Quarter: 2017Q1

REPORT INFORMATION
  Report Type: Spontaneous
  Country: US (occurrence: US)
  Receive Date: 20161028
  Receipt Date: 20170302
  Transmission Date: 20170428
  Serious: Yes (Other)
  Sender: FDA-Public Use
  Company Number: US-PFIZER INC-2016180872

PATIENT
  Age: 64 Year
  Sex: Female
  Weight: 78.46 kg

DRUGS (24)
  1. IBRANCE [Suspect]
     Active Substance: PALBOCICLIB
     Dosage: 100 MG, CYCLIC (DAILY)
     Dates: start: 20160616
  2. SENNA [Concomitant]
     Active Substance: SENNA LEAF\SENNOSIDES\SENNOSIDES A AND B
     Dosage: UNK
  3. LETROZOLE. [Concomitant]
     Active Substance: LETROZOLE
     Dosage: 2.5 MG, UNK
     Dates: start: 20160308
  4. NORCO [Concomitant]
     Active Substance: ACETAMINOPHEN\HYDROCODONE BITARTRATE
     Dosage: UNK [HYDROCODONE BITARTRATE 5MG]/ [PARACETAMOL 325 MG]
  5. IBRANCE [Suspect]
     Active Substance: PALBOCICLIB
     Dosage: UNK (CYCLE 2)
     Dates: start: 20160510
  6. IBRANCE [Suspect]
     Active Substance: PALBOCICLIB
     Dosage: UNK (CYCLE 5)
     Dates: start: 20160811
  7. SENNA S [Concomitant]
     Active Substance: DOCUSATE SODIUM\SENNA LEAF
     Dosage: UNK [DOCUSATE SODIUM: 50 MG] /[SENNOSIDE A+B: 8.6 MG]
  8. IBRANCE [Suspect]
     Active Substance: PALBOCICLIB
     Dosage: UNK (CYCLE 4)
     Dates: start: 20160714
  9. IBRANCE [Suspect]
     Active Substance: PALBOCICLIB
     Dosage: UNK (CYCLE 7)
     Dates: start: 20161005
  10. IBRANCE [Suspect]
     Active Substance: PALBOCICLIB
     Dosage: UNK (CYCLE 10)
     Dates: start: 20161228
  11. SCOPOLAMINE [Concomitant]
     Active Substance: SCOPOLAMINE
     Dosage: 1.5 MG, (1 APPLY ON THE SKIN Q72H)
     Route: 062
  12. SENNA [Concomitant]
     Active Substance: SENNA LEAF\SENNOSIDES\SENNOSIDES A AND B
     Dosage: 8.6 MG, UNK
     Route: 048
  13. IBRANCE [Suspect]
     Active Substance: PALBOCICLIB
     Dosage: UNK (CYCLE 9)
     Dates: start: 20161130
  14. HYDROCODONE/ACETAMINOPHEN [Concomitant]
     Active Substance: ACETAMINOPHEN\HYDROCODONE
     Indication: PAIN
     Dosage: 1 DF, 1X/DAY [HYDROCODONE: 5MG]/[ACETAMINOPHEN: 325MG]
     Route: 048
  15. METOPROLOL SUCCINATE. [Concomitant]
     Active Substance: METOPROLOL SUCCINATE
     Dosage: 100 MG, AS NEEDED
     Route: 048
  16. IBRANCE [Suspect]
     Active Substance: PALBOCICLIB
     Indication: BREAST CANCER METASTATIC
     Dosage: 125 MG, CYCLIC (ONCE DAILY FOR 21 DAYS, FOLLOWED BY 7 DAYS OFF)
     Dates: start: 20160406
  17. PROMETHAZINE [Concomitant]
     Active Substance: PROMETHAZINE\PROMETHAZINE HYDROCHLORIDE
     Dosage: 25 MG, 2X/DAY
     Route: 048
  18. IBRANCE [Suspect]
     Active Substance: PALBOCICLIB
     Dosage: 100 MG DAILY
     Route: 048
  19. IBRANCE [Suspect]
     Active Substance: PALBOCICLIB
     Dosage: UNK (CYCLE 8)
     Dates: start: 20161102
  20. IBRANCE [Suspect]
     Active Substance: PALBOCICLIB
     Dosage: 100 MG, CYCLIC (TAKE ONE AT NIGHT FOR 21 DAYS, REST FOR 7)
  21. IBRANCE [Suspect]
     Active Substance: PALBOCICLIB
     Dosage: UNK (CYCLE 6)
     Dates: start: 20160907
  22. IBRANCE [Suspect]
     Active Substance: PALBOCICLIB
     Dosage: 100 MG, CYCLIC, (AT NIGHT FOR 21 OUT OF 28 DAYS)
     Route: 048
     Dates: start: 20160406, end: 20170201
  23. METOPROLOL SUCCINATE. [Concomitant]
     Active Substance: METOPROLOL SUCCINATE
     Dosage: 100 MG, UNK
  24. HYDROCHLOROTHIAZIDE. [Concomitant]
     Active Substance: HYDROCHLOROTHIAZIDE
     Dosage: 25 MG, DAILY
     Route: 048

REACTIONS (5)
  - Oropharyngeal pain [Recovered/Resolved]
  - Viral upper respiratory tract infection [Unknown]
  - Nasopharyngitis [Recovered/Resolved]
  - Neutropenia [Recovered/Resolved]
  - Hypertension [Recovered/Resolved]

NARRATIVE: CASE EVENT DATE: 201605
